FAERS Safety Report 15975177 (Version 2)
Quarter: 2020Q4

REPORT INFORMATION
  Report Type: Report from Study
  Country: US (occurrence: US)
  Receive Date: 20190218
  Receipt Date: 20201013
  Transmission Date: 20210113
  Serious: No
  Sender: FDA-Public Use
  Company Number: US-CELLTRION INC.-2018US024167

PATIENT

DRUGS (25)
  1. PENTASA [Concomitant]
     Active Substance: MESALAMINE
     Dosage: 500 MG, 2 CAPSULES, 4 TIMES A DAY
     Route: 048
     Dates: start: 20150128
  2. ADVIL (MEFENAMIC ACID) [Concomitant]
     Active Substance: MEFENAMIC ACID
     Dosage: 3 PILLS , 4 TIMES A DAY
     Route: 048
     Dates: start: 20150424
  3. FINASTERIDE. [Concomitant]
     Active Substance: FINASTERIDE
     Dosage: 5 MG, QD
     Dates: start: 20170125, end: 20170215
  4. GABAPENTIN. [Concomitant]
     Active Substance: GABAPENTIN
     Dosage: 300 MG, TID
     Route: 048
     Dates: start: 20150128
  5. PHAZYME                            /00164001/ [Concomitant]
     Dosage: 180 MG, DAILY, 1 TIME
     Route: 048
     Dates: start: 20150128
  6. HUMIRA [Concomitant]
     Active Substance: ADALIMUMAB
     Dosage: 40 MG, EVERY 2 WEEKS
     Route: 048
     Dates: start: 20160531, end: 20160811
  7. LINZESS [Concomitant]
     Active Substance: LINACLOTIDE
     Dosage: 290 MCG, 1 CAPSULE/DAY
     Route: 048
     Dates: start: 20180209, end: 201803
  8. OMEPRAZOLE. [Concomitant]
     Active Substance: OMEPRAZOLE
     Dosage: 40 MG, 1 CAPSULE/DAY
     Route: 048
     Dates: start: 20150128
  9. METANX [Concomitant]
     Active Substance: LEVOMEFOLATE CALCIUM\METHYLCOBALAMIN\PYRIDOXAL PHOSPHATE ANHYDROUS
     Dosage: 3 UNK, 3 PILLS , 1 CAPSULE EVERY OTHER DAY
     Route: 048
     Dates: start: 20150424
  10. BUDESONIDE. [Concomitant]
     Active Substance: BUDESONIDE
     Dosage: 3 MG, 3 CAPSULES ONCE PER DAY
     Route: 048
     Dates: start: 20170215, end: 20171020
  11. ESTRADIOL. [Concomitant]
     Active Substance: ESTRADIOL
     Dosage: 0.05 MG, 24 HOURS
     Route: 048
     Dates: start: 20150424
  12. PREDNISONE. [Concomitant]
     Active Substance: PREDNISONE
     Dosage: 10 MG, 2 TABLETS ONCE PERDAY
     Route: 048
     Dates: start: 20161229, end: 20170407
  13. INFLECTRA [Suspect]
     Active Substance: INFLIXIMAB-DYYB
     Dosage: 500 MG, EVERY 6 WEEKS
     Route: 042
     Dates: start: 20180831, end: 20180831
  14. WELLBUTRIN [Concomitant]
     Active Substance: BUPROPION HYDROCHLORIDE
     Dosage: 150 MG
     Route: 048
     Dates: start: 20150128
  15. ZOLOFT [Concomitant]
     Active Substance: SERTRALINE HYDROCHLORIDE
     Dosage: 50 MG, QAM
     Route: 048
     Dates: start: 20150128
  16. APRISO [Concomitant]
     Active Substance: MESALAMINE
     Dosage: 0.375 G, 4 CAPSULES,
  17. METAMUCIL [Concomitant]
     Active Substance: PLANTAGO SEED
     Dosage: 0.52 G, 2 CAPS, POWDER
     Route: 048
     Dates: start: 20160811, end: 20170125
  18. PREDNISONE. [Concomitant]
     Active Substance: PREDNISONE
     Dosage: 10 MG, 3 TABLETS ONCE PER DAY
     Route: 048
     Dates: start: 20180413
  19. INFLECTRA [Suspect]
     Active Substance: INFLIXIMAB-DYYB
     Indication: PRODUCT USED FOR UNKNOWN INDICATION
     Dosage: 500 MG, EVERY 6 WEEKS
     Route: 042
     Dates: start: 20180522, end: 20180522
  20. RELACORE [Concomitant]
     Dosage: 3 DF, IN THE MORNING
     Route: 048
     Dates: start: 20150424
  21. MULTIPLE VITAMINS [Concomitant]
     Active Substance: VITAMINS
     Dosage: UNK
     Route: 048
  22. TYLENOL [Concomitant]
     Active Substance: ACETAMINOPHEN
     Dosage: 3Q4H
     Route: 048
     Dates: start: 20170811, end: 20171201
  23. FLAGYL [Concomitant]
     Active Substance: METRONIDAZOLE\METRONIDAZOLE HYDROCHLORIDE
     Dosage: 300 MG, TID
     Route: 048
     Dates: start: 20171020, end: 20171027
  24. PROMETRIUM [Concomitant]
     Active Substance: PROGESTERONE
     Dosage: 100 MG
     Route: 048
     Dates: start: 20150424
  25. RANITIDINE HCL [Concomitant]
     Active Substance: RANITIDINE HYDROCHLORIDE
     Dosage: 300 MG, 1 TABLET
     Route: 048
     Dates: start: 20180112

REACTIONS (1)
  - Drug ineffective [Unknown]

NARRATIVE: CASE EVENT DATE: 20180831
